FAERS Safety Report 15145166 (Version 1)
Quarter: 2018Q3

REPORT INFORMATION
  Report Type: Spontaneous
  Country: US (occurrence: US)
  Receive Date: 20180713
  Receipt Date: 20180713
  Transmission Date: 20181010
  Serious: No
  Sender: FDA-Public Use
  Company Number: US-INTERCEPT-PMOCA2018000357

PATIENT

DRUGS (3)
  1. OCALIVA [Suspect]
     Active Substance: OBETICHOLIC ACID
     Indication: PRIMARY BILIARY CHOLANGITIS
     Dosage: 5 MG, QW
     Route: 048
     Dates: start: 20170725, end: 201708
  2. OCALIVA [Suspect]
     Active Substance: OBETICHOLIC ACID
     Indication: FIBROSIS
     Dosage: 5 MG, QD
     Route: 048
     Dates: start: 201708, end: 201712
  3. OCALIVA [Suspect]
     Active Substance: OBETICHOLIC ACID
     Indication: HEPATIC CIRRHOSIS
     Dosage: 5 MG, QD
     Route: 048
     Dates: start: 20180305

REACTIONS (4)
  - Constipation [Recovered/Resolved]
  - Flatulence [Unknown]
  - Cyst [Recovered/Resolved]
  - Pruritus [Unknown]

NARRATIVE: CASE EVENT DATE: 201803
